FAERS Safety Report 7376393-2 (Version None)
Quarter: 2011Q1

REPORT INFORMATION
  Report Type: 
  Country: None (occurrence: None)
  Receive Date: 20110325
  Receipt Date: 20100110
  Transmission Date: 20110831
  Serious: Yes (Death, Other)
  Sender: FDA-Public Use
  Company Number: US-BAYER-201010739NA

PATIENT
  Sex: Male
  Weight: 87.5 kg

DRUGS (40)
  1. ASPIRIN [Concomitant]
     Indication: PRODUCT USED FOR UNKNOWN INDICATION
     Dosage: 81 MG, QD
     Route: 048
  2. PROPOFOL [Concomitant]
     Dosage: 250 MG, TIMES 2
     Route: 042
     Dates: start: 20040114
  3. VASOPRESSIN [Concomitant]
     Indication: PRODUCT USED FOR UNKNOWN INDICATION
     Dosage: 1 U, Q1MIN
     Route: 042
     Dates: start: 20040114, end: 20040114
  4. INSULIN [Concomitant]
     Indication: PRODUCT USED FOR UNKNOWN INDICATION
     Dosage: 1 TO 4 U, Q1HR
     Route: 042
     Dates: start: 20040114
  5. ZOCOR [Concomitant]
     Indication: PRODUCT USED FOR UNKNOWN INDICATION
     Dosage: 40 MG, QD
     Route: 048
     Dates: start: 20030501, end: 20040101
  6. COREG [Concomitant]
     Dosage: 25 MG, HS
     Route: 048
     Dates: start: 20030501, end: 20040101
  7. TRIDIL [Concomitant]
     Indication: PRODUCT USED FOR UNKNOWN INDICATION
     Dosage: 200 MCG
     Route: 022
     Dates: start: 20040113, end: 20040113
  8. HEPARIN [Concomitant]
     Indication: PRODUCT USED FOR UNKNOWN INDICATION
     Dosage: 3900 U, UNK
     Route: 013
     Dates: start: 20040113, end: 20040113
  9. CALCIUM CHLORIDE [Concomitant]
     Indication: PRODUCT USED FOR UNKNOWN INDICATION
     Dosage: 1 G, UNK
     Dates: start: 20040114
  10. SUFENTANIL CITRATE [Concomitant]
     Dosage: 20 MG, UNK
     Route: 042
     Dates: start: 20040114, end: 20040114
  11. PROPOFOL [Concomitant]
     Indication: PRODUCT USED FOR UNKNOWN INDICATION
     Dosage: 200 MG, UNK
     Route: 042
     Dates: start: 20040114
  12. NITROGLYCERIN [Concomitant]
     Indication: PRODUCT USED FOR UNKNOWN INDICATION
  13. LISINOPRIL [Concomitant]
     Indication: PRODUCT USED FOR UNKNOWN INDICATION
     Dosage: UNK
     Dates: start: 20030501, end: 20040101
  14. VERSED [Concomitant]
     Indication: PRODUCT USED FOR UNKNOWN INDICATION
     Dosage: 2 MG, UNK
     Route: 042
     Dates: start: 20040113, end: 20040113
  15. HEPARIN [Concomitant]
     Dosage: 10000 U, UNK
     Dates: start: 20040114
  16. MILRINONE [Concomitant]
     Indication: PRODUCT USED FOR UNKNOWN INDICATION
     Dosage: 0.25 TO 0.5 UNK
     Route: 042
     Dates: start: 20040114
  17. TRASYLOL [Suspect]
     Indication: CORONARY ARTERY BYPASS
     Dosage: 1 ML, ONCE
     Route: 042
     Dates: start: 20040114, end: 20040114
  18. PLAVIX [Concomitant]
     Indication: PRODUCT USED FOR UNKNOWN INDICATION
     Dosage: 75 MG, QD
     Route: 048
     Dates: start: 20030501, end: 20040101
  19. MICARDIS [Concomitant]
     Indication: PRODUCT USED FOR UNKNOWN INDICATION
     Dosage: 80 MG, QD
     Route: 048
     Dates: start: 20030701
  20. DYAZIDE [Concomitant]
     Indication: PRODUCT USED FOR UNKNOWN INDICATION
     Dosage: 1 DF, UNK
     Route: 048
  21. VERSED [Concomitant]
     Dosage: 3 MG, UNK
     Route: 042
     Dates: start: 20040114
  22. NEO-SYNEPHRINOL [Concomitant]
     Indication: PRODUCT USED FOR UNKNOWN INDICATION
     Dosage: 1000 MCG
     Dates: start: 20040114
  23. EPINEPHRINE [Concomitant]
     Indication: PRODUCT USED FOR UNKNOWN INDICATION
     Dosage: 0.01 UNK
     Route: 042
     Dates: start: 20040114, end: 20040114
  24. VECURONIUM BROMIDE [Concomitant]
     Indication: PRODUCT USED FOR UNKNOWN INDICATION
     Dosage: 2 TO 18 MG DOSES
     Route: 042
     Dates: start: 20040114, end: 20040114
  25. TRASYLOL [Suspect]
     Dosage: 25 ML, Q1HR
     Route: 042
     Dates: start: 20040114, end: 20040114
  26. UNCODEABLE ^UNCLASSIFIABLE^ [Concomitant]
     Indication: PRODUCT USED FOR UNKNOWN INDICATION
     Dosage: 1 G, UNK
     Dates: start: 20040114
  27. LIDOCAINE [Concomitant]
     Indication: PRODUCT USED FOR UNKNOWN INDICATION
     Dosage: 130 MG, UNK
     Dates: start: 20040114
  28. SUFENTANIL CITRATE [Concomitant]
     Indication: PRODUCT USED FOR UNKNOWN INDICATION
     Dosage: 50 MG, UNK
     Route: 042
     Dates: start: 20040114, end: 20040114
  29. TRASYLOL [Suspect]
     Dosage: 200 ML, ONCE
     Route: 042
     Dates: start: 20040114, end: 20040114
  30. VERSED [Concomitant]
     Dosage: 2 MG, UNK
     Route: 042
     Dates: start: 20040114
  31. SODIUM BICARBONATE [Concomitant]
     Indication: PRODUCT USED FOR UNKNOWN INDICATION
     Dosage: 50 MEQ, UNK
     Dates: start: 20040114
  32. MAGNESIUM SULFATE [Concomitant]
     Indication: PRODUCT USED FOR UNKNOWN INDICATION
     Dosage: 2 G, UNK
     Dates: start: 20040114
  33. FORANE [Concomitant]
     Indication: PRODUCT USED FOR UNKNOWN INDICATION
     Dosage: 1-2% INHALED
  34. SUFENTANIL CITRATE [Concomitant]
     Dosage: 30 MG, UNK
     Route: 042
     Dates: start: 20040114, end: 20040114
  35. PROTAMINE SULFATE [Concomitant]
     Indication: PRODUCT USED FOR UNKNOWN INDICATION
     Dosage: 25 UNK
     Dates: start: 20040114, end: 20040114
  36. ZETIA [Concomitant]
     Indication: PRODUCT USED FOR UNKNOWN INDICATION
     Dosage: 10 MG, QD
     Route: 048
     Dates: start: 20030901, end: 20040101
  37. NEO-SYNEPHRINOL [Concomitant]
     Dosage: 0.1 TO 0.3 UNK
     Route: 042
     Dates: start: 20040114, end: 20040114
  38. TRASYLOL [Suspect]
     Dosage: 50 ML, Q1HR
     Route: 042
     Dates: start: 20040114, end: 20040114
  39. COREG [Concomitant]
     Indication: PRODUCT USED FOR UNKNOWN INDICATION
     Dosage: 12.5 MG, OM
     Route: 048
     Dates: start: 20030501, end: 20040101
  40. ISOVUE-370 [Concomitant]
     Indication: PRODUCT USED FOR UNKNOWN INDICATION
     Dosage: 220 ML, UNK
     Dates: start: 20040113

REACTIONS (11)
  - UNEVALUABLE EVENT [None]
  - ANXIETY [None]
  - INJURY [None]
  - CEREBROVASCULAR ACCIDENT [None]
  - PAIN [None]
  - FEAR [None]
  - MYOCARDIAL INFARCTION [None]
  - RENAL FAILURE [None]
  - DEPRESSION [None]
  - ANHEDONIA [None]
  - DEATH [None]
